FAERS Safety Report 6346785-9 (Version None)
Quarter: 2009Q3

REPORT INFORMATION
  Report Type: 
  Country: None (occurrence: None)
  Receive Date: 20090910
  Receipt Date: 20090828
  Transmission Date: 20100115
  Serious: No
  Sender: FDA-Public Use
  Company Number: FR-BIOGENIDEC-2008BI027352

PATIENT
  Age: 38 Year
  Sex: Female

DRUGS (6)
  1. TYSABRI [Suspect]
     Indication: MULTIPLE SCLEROSIS
     Route: 042
     Dates: start: 20070607
  2. LYRICA [Concomitant]
     Indication: NEURALGIA
     Dates: start: 20071105
  3. CERIS [Concomitant]
     Indication: BLADDER DISORDER
     Dates: start: 20080516
  4. LIORESAL [Concomitant]
     Indication: HYPERTONIA
     Dates: start: 20040101
  5. MANTADIX [Concomitant]
     Indication: FATIGUE
     Dates: start: 20070706
  6. PAROXETINE HCL [Concomitant]
     Indication: DEPRESSION
     Dates: start: 20040101

REACTIONS (2)
  - CLOSTRIDIUM DIFFICILE COLITIS [None]
  - URINARY TRACT INFECTION [None]
